FAERS Safety Report 6690248-8 (Version None)
Quarter: 2010Q2

REPORT INFORMATION
  Report Type: 
  Country: None (occurrence: None)
  Receive Date: 20100421
  Receipt Date: 20100412
  Transmission Date: 20101027
  Serious: Yes (Hospitalization)
  Sender: FDA-Public Use
  Company Number: CL-ROCHE-695228

PATIENT
  Age: 68 Year
  Sex: Male
  Weight: 76 kg

DRUGS (6)
  1. CAPECITABINE [Suspect]
     Indication: COLON CANCER
     Dosage: FREQUENCY: 1500 MG IN MORNING. 1000 MG IN AFTERNOON.
     Route: 048
     Dates: start: 20100222, end: 20100317
  2. LOSARTAN POTASSIUM [Concomitant]
     Indication: HYPERTENSION
     Route: 048
  3. PREDNISONE [Concomitant]
     Route: 048
  4. OMEPRAZOLE [Concomitant]
     Route: 048
  5. VITAMIN B-12 [Concomitant]
     Route: 048
  6. VITAMIN E [Concomitant]
     Route: 048

REACTIONS (6)
  - ARTHRALGIA [None]
  - INFLAMMATION [None]
  - PERICARDIAL EFFUSION [None]
  - PERICARDITIS [None]
  - PLEURAL EFFUSION [None]
  - PULMONARY OEDEMA [None]
